FAERS Safety Report 10229308 (Version 2)
Quarter: 2014Q2

REPORT INFORMATION
  Report Type: Spontaneous
  Country: US (occurrence: US)
  Receive Date: 20140611
  Receipt Date: 20140630
  Transmission Date: 20141212
  Serious: No
  Sender: FDA-Public Use
  Company Number: US-BIOGENIDEC-2014BI054858

PATIENT
  Sex: Male

DRUGS (2)
  1. AVONEX [Suspect]
     Indication: MULTIPLE SCLEROSIS
     Route: 030
     Dates: start: 200012, end: 2001
  2. REBIF [Concomitant]
     Indication: MULTIPLE SCLEROSIS

REACTIONS (9)
  - Central nervous system lesion [Unknown]
  - Eyelid ptosis [Recovered/Resolved]
  - Gastric disorder [Unknown]
  - Temperature intolerance [Recovered/Resolved]
  - Optic neuritis [Recovered/Resolved]
  - Peroneal nerve palsy [Recovered/Resolved]
  - Influenza like illness [Recovered/Resolved]
  - Pain [Recovered/Resolved]
  - Muscular weakness [Recovered/Resolved]
